FAERS Safety Report 7465064-X (Version None)
Quarter: 2011Q2

REPORT INFORMATION
  Report Type: 
  Country: None (occurrence: None)
  Receive Date: 20110509
  Receipt Date: 20110429
  Transmission Date: 20111010
  Serious: Yes (Hospitalization)
  Sender: FDA-Public Use
  Company Number: BR-ASTRAZENECA-2011SE25163

PATIENT
  Age: 92 Year
  Sex: Female
  Weight: 50 kg

DRUGS (9)
  1. LOSARTAN [Concomitant]
     Route: 048
     Dates: start: 20090101
  2. SUSTRATE [Concomitant]
     Route: 048
     Dates: start: 20090101
  3. BEROTEC [Suspect]
     Indication: EMPHYSEMA
     Route: 055
     Dates: end: 20110401
  4. PURAN T4 [Concomitant]
     Route: 048
     Dates: start: 20090101
  5. DIGOXIN [Concomitant]
     Route: 048
     Dates: start: 20090101
  6. ASPIRIN [Concomitant]
     Route: 048
     Dates: start: 20090101
  7. LABIRIN [Concomitant]
     Route: 048
     Dates: start: 20090101
  8. CRESTOR [Suspect]
     Indication: HYPERCHOLESTEROLAEMIA
     Route: 048
     Dates: start: 20090101
  9. BUDESONIDE [Suspect]
     Indication: EMPHYSEMA
     Dosage: 160/4.5 UG
     Route: 055

REACTIONS (3)
  - DRUG PRESCRIBING ERROR [None]
  - EMPHYSEMA [None]
  - DYSPNOEA [None]
